FAERS Safety Report 6646257-8 (Version None)
Quarter: 2010Q1

REPORT INFORMATION
  Report Type: 
  Country: None (occurrence: None)
  Receive Date: 20100323
  Receipt Date: 20100219
  Transmission Date: 20100710
  Serious: No
  Sender: FDA-Public Use
  Company Number: US-BAYER-201012433BCC

PATIENT
  Age: 76 Year
  Sex: Male
  Weight: 77 kg

DRUGS (2)
  1. ALEVE [Suspect]
     Indication: NEURALGIA
     Dosage: TOTAL DAILY DOSE: 220 MG  UNIT DOSE: 220 MG
     Route: 048
     Dates: start: 20100205, end: 20100201
  2. AMBIEN [Concomitant]
     Route: 065

REACTIONS (1)
  - MUSCLE TWITCHING [None]
